FAERS Safety Report 24906030 (Version 3)
Quarter: 2025Q1

REPORT INFORMATION
  Report Type: Spontaneous
  Country: LT (occurrence: LT)
  Receive Date: 20250130
  Receipt Date: 20250325
  Transmission Date: 20250409
  Serious: Yes (Other)
  Sender: MYLAN
  Company Number: LT-SUN PHARMACEUTICAL INDUSTRIES LTD-2025RR-490069

PATIENT
  Age: 29 Year
  Sex: Female

DRUGS (18)
  1. METOPROLOL [Suspect]
     Active Substance: METOPROLOL
     Indication: Hypertension
  2. DICLOFENAC [Suspect]
     Active Substance: DICLOFENAC
     Indication: Pain
  3. MEROPENEM [Suspect]
     Active Substance: MEROPENEM
     Indication: Antibiotic therapy
     Dates: start: 20201219
  4. FLUCONAZOLE [Suspect]
     Active Substance: FLUCONAZOLE
     Indication: Antifungal treatment
  5. AMOXICILLIN\CLAVULANIC ACID [Suspect]
     Active Substance: AMOXICILLIN\CLAVULANIC ACID
     Indication: Antibiotic therapy
  6. OMEPRAZOLE [Suspect]
     Active Substance: OMEPRAZOLE
     Indication: Prophylaxis
  7. OMEPRAZOLE [Suspect]
     Active Substance: OMEPRAZOLE
     Indication: Prophylaxis against gastrointestinal ulcer
  8. NOREPINEPHRINE BITARTRATE [Suspect]
     Active Substance: NOREPINEPHRINE BITARTRATE
     Indication: Haemodynamic instability
  9. DEXMEDETOMIDINE [Suspect]
     Active Substance: DEXMEDETOMIDINE
     Indication: Sedative therapy
  10. IBUPROFEN [Suspect]
     Active Substance: IBUPROFEN
     Indication: Pain
  11. LORAZEPAM [Suspect]
     Active Substance: LORAZEPAM
     Indication: Anxiety
  12. LORAZEPAM [Suspect]
     Active Substance: LORAZEPAM
     Indication: Insomnia
  13. MORPHINE [Suspect]
     Active Substance: MORPHINE
     Indication: Sedative therapy
  14. DIPRIVAN [Suspect]
     Active Substance: PROPOFOL
     Indication: Sedative therapy
  15. BROMOCRIPTINE [Suspect]
     Active Substance: BROMOCRIPTINE
     Indication: Lactation inhibition therapy
     Dates: start: 20201221
  16. VANCOMYCIN [Suspect]
     Active Substance: VANCOMYCIN
     Indication: Antibiotic therapy
     Dates: start: 20201219
  17. DECADRON (DEXAMETHASONE SODIUM PHOSPHATE) [Suspect]
     Active Substance: DEXAMETHASONE SODIUM PHOSPHATE
     Indication: Product used for unknown indication
     Dates: start: 20201219
  18. PROPOFOL [Suspect]
     Active Substance: PROPOFOL
     Indication: Sedative therapy

REACTIONS (3)
  - Foetal death [Recovered/Resolved]
  - Maternal exposure during pregnancy [Recovered/Resolved]
  - No adverse event [Recovered/Resolved]

NARRATIVE: CASE EVENT DATE: 20201219
